FAERS Safety Report 22378223 (Version 5)
Quarter: 2023Q2

REPORT INFORMATION
  Report Type: Report from Study
  Country: US (occurrence: US)
  Receive Date: 20230529
  Receipt Date: 20230614
  Transmission Date: 20230721
  Serious: No
  Sender: FDA-Public Use
  Company Number: US-002147023-NVSC2023US120354

PATIENT
  Sex: Female

DRUGS (1)
  1. KESIMPTA [Suspect]
     Active Substance: OFATUMUMAB
     Indication: Product used for unknown indication
     Dosage: UNK
     Route: 058

REACTIONS (10)
  - Hypersensitivity [Unknown]
  - Joint swelling [Unknown]
  - Rash [Unknown]
  - Peripheral swelling [Not Recovered/Not Resolved]
  - Feeling cold [Unknown]
  - Pyrexia [Unknown]
  - Tremor [Unknown]
  - Paraesthesia [Unknown]
  - Feeling jittery [Unknown]
  - Fungal infection [Unknown]
